FAERS Safety Report 26001333 (Version 1)
Quarter: 2025Q4

REPORT INFORMATION
  Report Type: Spontaneous
  Country: AU (occurrence: AU)
  Receive Date: 20251105
  Receipt Date: 20251105
  Transmission Date: 20260117
  Serious: Yes (Hospitalization, Other)
  Sender: RANBAXY
  Company Number: AU-SUN PHARMACEUTICAL INDUSTRIES LTD-2025R1-534719

PATIENT
  Sex: Female

DRUGS (1)
  1. LAMOTRIGINE [Suspect]
     Active Substance: LAMOTRIGINE
     Indication: Product used for unknown indication
     Dosage: UNK
     Route: 065
     Dates: start: 20250301

REACTIONS (14)
  - Conjunctival hyperaemia [Unknown]
  - Dysuria [Unknown]
  - Gingival erosion [Unknown]
  - Intentional product misuse [Unknown]
  - Lip swelling [Unknown]
  - Mucosal erosion [Unknown]
  - Odynophagia [Unknown]
  - Papule [Unknown]
  - Rash [Not Recovered/Not Resolved]
  - Reactive infectious mucocutaneous eruption [Unknown]
  - Stevens-Johnson syndrome [Unknown]
  - Swelling face [Not Recovered/Not Resolved]
  - Target skin lesion [Unknown]
  - Vulvovaginal erythema [Unknown]
